FAERS Safety Report 6522845-4 (Version None)
Quarter: 2009Q4

REPORT INFORMATION
  Report Type: 
  Country: None (occurrence: None)
  Receive Date: 20091230
  Receipt Date: 20091221
  Transmission Date: 20100525
  Serious: Yes (Hospitalization)
  Sender: FDA-Public Use
  Company Number: JP-AMGEN-US347464

PATIENT
  Sex: Female
  Weight: 39 kg

DRUGS (7)
  1. ENBREL [Suspect]
     Indication: RHEUMATOID ARTHRITIS
     Route: 058
     Dates: start: 20080522
  2. PREDNISOLONE [Suspect]
     Indication: RHEUMATOID ARTHRITIS
     Route: 048
     Dates: start: 20060127
  3. CELECOXIB [Suspect]
     Indication: RHEUMATOID ARTHRITIS
     Route: 048
     Dates: start: 20080606
  4. D ALFA [Concomitant]
     Route: 048
     Dates: start: 20080620
  5. SOLON [Concomitant]
     Route: 048
     Dates: start: 20071109
  6. PROTECADIN [Concomitant]
     Route: 048
     Dates: start: 20071109
  7. TACROLIMUS [Concomitant]
     Indication: RHEUMATOID ARTHRITIS
     Route: 048
     Dates: start: 20080418, end: 20080526

REACTIONS (2)
  - CEREBRAL INFARCTION [None]
  - VERTEBRAL ARTERY OCCLUSION [None]
